FAERS Safety Report 24304681 (Version 4)
Quarter: 2024Q4

REPORT INFORMATION
  Report Type: Report from Study
  Country: US (occurrence: US)
  Receive Date: 20240910
  Receipt Date: 20241125
  Transmission Date: 20250115
  Serious: No
  Sender: SUNOVION
  Company Number: US-SUMITOMO PHARMA SWITZERLAND GMBH-2024SPA001990

PATIENT

DRUGS (2)
  1. ORGOVYX [Suspect]
     Active Substance: RELUGOLIX
     Indication: Prostate cancer
     Dosage: 360 MG
     Route: 048
  2. ORGOVYX [Suspect]
     Active Substance: RELUGOLIX
     Dosage: 120 MG, QD
     Route: 048
     Dates: start: 20240822

REACTIONS (14)
  - Limb injury [Recovered/Resolved]
  - Pain [Recovered/Resolved]
  - Sexual life impairment [Unknown]
  - Increased appetite [Unknown]
  - Skin irritation [Unknown]
  - Erythema [Unknown]
  - Peripheral swelling [Recovered/Resolved]
  - Glucose tolerance impaired [Unknown]
  - Pollakiuria [Unknown]
  - Asthenia [Unknown]
  - Fatigue [Unknown]
  - Hot flush [Unknown]
  - Weight increased [Unknown]
  - Insomnia [Unknown]

NARRATIVE: CASE EVENT DATE: 20240101
